FAERS Safety Report 10235535 (Version 3)
Quarter: 2014Q2

REPORT INFORMATION
  Report Type: Spontaneous
  Country: JP (occurrence: JP)
  Receive Date: 20140613
  Receipt Date: 20140625
  Transmission Date: 20141212
  Serious: Yes (Hospitalization, Other)
  Sender: FDA-Public Use
  Company Number: JP-NOVOPROD-411283

PATIENT
  Age: 66 Year
  Sex: Male
  Weight: 55 kg

DRUGS (5)
  1. NOVORAPID 30 MIX CHU FLEXPEN [Suspect]
     Indication: TYPE 2 DIABETES MELLITUS
     Dosage: 4 U, TID
     Route: 058
     Dates: start: 20140324, end: 20140521
  2. NOVOLIN R CHU [Suspect]
     Indication: TYPE 2 DIABETES MELLITUS
     Dosage: 32 IU, QD (28-0-4IU)
     Route: 065
  3. NOVOLIN R CHU [Suspect]
     Dosage: 4 IU, TID
     Route: 065
  4. LANTUS [Suspect]
     Indication: TYPE 2 DIABETES MELLITUS
     Dosage: 4 U, QD
     Route: 058
     Dates: start: 20140324, end: 20140521
  5. TRAZENTA [Concomitant]
     Indication: TYPE 2 DIABETES MELLITUS
     Dosage: 5 MG, QD
     Route: 048
     Dates: start: 20140324, end: 20140521

REACTIONS (5)
  - Hyperglycaemia [Unknown]
  - Malaise [Unknown]
  - Drug dispensing error [Unknown]
  - Wrong drug administered [Unknown]
  - Diabetes mellitus inadequate control [Unknown]
